FAERS Safety Report 4374716-X (Version None)
Quarter: 2004Q2

REPORT INFORMATION
  Report Type: 
  Country: None (occurrence: None)
  Receive Date: 20040604
  Receipt Date: 20040525
  Transmission Date: 20050107
  Serious: Yes (Death, Other)
  Sender: FDA-Public Use
  Company Number: 2004008259

PATIENT
  Age: 66 Year
  Sex: Male

DRUGS (1)
  1. SULPERAZON (CEFOPERAZONE, SULBACTAM) [Suspect]
     Indication: INFECTION PROPHYLAXIS
     Dosage: 2 GRAM (D), INTRAVENOUS
     Route: 042
     Dates: start: 20040122, end: 20040124

REACTIONS (3)
  - CARCINOMA [None]
  - EXANTHEM [None]
  - POST PROCEDURAL COMPLICATION [None]
